FAERS Safety Report 14731637 (Version 1)
Quarter: 2018Q2

REPORT INFORMATION
  Report Type: Spontaneous
  Country: US (occurrence: US)
  Receive Date: 20180407
  Receipt Date: 20180407
  Transmission Date: 20180711
  Serious: Yes (Death)
  Sender: FDA-Public Use
  Company Number: US-VIFOR (INTERNATIONAL) INC.-VIT-2016-02448

PATIENT
  Sex: Female

DRUGS (1)
  1. VELTASSA [Suspect]
     Active Substance: PATIROMER
     Indication: HYPERKALAEMIA
     Route: 048
     Dates: start: 20160419, end: 20160511

REACTIONS (3)
  - Hyperphagia [Unknown]
  - Treatment noncompliance [Unknown]
  - Coronary artery disease [Fatal]

NARRATIVE: CASE EVENT DATE: 2016
